FAERS Safety Report 9626412 (Version 1)
Quarter: 2013Q4

REPORT INFORMATION
  Report Type: Spontaneous
  Country: US (occurrence: US)
  Receive Date: 20131016
  Receipt Date: 20131016
  Transmission Date: 20140711
  Serious: Yes (Other)
  Sender: FDA-Public Use
  Company Number: US-ROCHE-1288845

PATIENT
  Age: 96 Year
  Sex: Female

DRUGS (2)
  1. LUCENTIS [Suspect]
     Indication: AGE-RELATED MACULAR DEGENERATION
     Dosage: BOTH EYES, ON 07/JUN/2013 AND 04/SEP/2013, MOST RECENT DOSE OF RANIBIZUMAB
     Route: 050
     Dates: start: 201103, end: 20130911
  2. LEXAPRO [Concomitant]

REACTIONS (6)
  - Cerebrovascular accident [Not Recovered/Not Resolved]
  - Ataxia [Not Recovered/Not Resolved]
  - Depressed level of consciousness [Not Recovered/Not Resolved]
  - Transient ischaemic attack [Unknown]
  - Pain [Unknown]
  - Blood pressure increased [Recovered/Resolved]
